FAERS Safety Report 7102163-6 (Version None)
Quarter: 2010Q4

REPORT INFORMATION
  Report Type: 
  Country: None (occurrence: None)
  Receive Date: 20101115
  Receipt Date: 20101103
  Transmission Date: 20110411
  Serious: Yes (Hospitalization, Other)
  Sender: FDA-Public Use
  Company Number: IT-ROCHE-738937

PATIENT
  Sex: Female
  Weight: 77 kg

DRUGS (2)
  1. BEVACIZUMAB [Suspect]
     Dosage: FORM VIALS, PERMANENTLY STOPPED.
     Route: 042
     Dates: start: 20090610, end: 20100617
  2. ZOLEDRONIC ACID [Suspect]
     Dosage: FORM VIAL.
     Route: 042
     Dates: start: 20090101, end: 20100401

REACTIONS (3)
  - HEADACHE [None]
  - HYPERTENSION [None]
  - OSTEONECROSIS OF JAW [None]
